FAERS Safety Report 14841924 (Version 3)
Quarter: 2019Q2

REPORT INFORMATION
  Report Type: Spontaneous
  Country: US (occurrence: GB)
  Receive Date: 20180503
  Receipt Date: 20190515
  Transmission Date: 20190711
  Serious: Yes (Other)
  Sender: FDA-Public Use
  Company Number: GB-ASTRAZENECA-2018SE56611

PATIENT
  Sex: Female

DRUGS (1)
  1. SEROQUEL [Suspect]
     Active Substance: QUETIAPINE FUMARATE
     Route: 048

REACTIONS (4)
  - Cerebrovascular accident [Unknown]
  - Large intestinal obstruction [Unknown]
  - Transient ischaemic attack [Unknown]
  - Tic [Unknown]
